FAERS Safety Report 17094141 (Version 2)
Quarter: 2019Q4

REPORT INFORMATION
  Report Type: Report from Study
  Country: JP (occurrence: JP)
  Receive Date: 20191129
  Receipt Date: 20191213
  Transmission Date: 20200122
  Serious: Yes (Hospitalization, Other)
  Sender: FDA-Public Use
  Company Number: JP-BRISTOL-MYERS SQUIBB COMPANY-BMS-2018-125233

PATIENT
  Age: 62 Year
  Sex: Male
  Weight: 77.6 kg

DRUGS (11)
  1. NIVOLUMAB [Suspect]
     Active Substance: NIVOLUMAB
     Indication: NON-SMALL CELL LUNG CANCER
     Dosage: 360MG, Q3W
     Route: 041
     Dates: start: 20180622
  2. PREDONINE [Concomitant]
     Active Substance: PREDNISOLONE
     Indication: PRODUCT USED FOR UNKNOWN INDICATION
     Dosage: 5 MILLIGRAM, Q12H
     Route: 048
     Dates: start: 20190509
  3. URSODEOXYCHOLIC ACID [Concomitant]
     Active Substance: URSODIOL
     Indication: ALCOHOLIC LIVER DISEASE
     Route: 065
  4. MAGMITT [Concomitant]
     Active Substance: MAGNESIUM OXIDE
     Indication: PROPHYLAXIS
     Dosage: 330 MG, Q8H
     Route: 048
  5. ROSUVASTATIN. [Concomitant]
     Active Substance: ROSUVASTATIN
     Indication: PRODUCT USED FOR UNKNOWN INDICATION
     Dosage: 2.5 MILLIGRAM, QD
     Route: 048
     Dates: start: 20190604
  6. URSODEOXYCHOLIC ACID [Concomitant]
     Active Substance: URSODIOL
     Indication: ALCOHOLIC LIVER DISEASE
     Dosage: 100 MILLIGRAM, Q8H
     Route: 048
  7. AMLODIPINE BESILATE [Concomitant]
     Active Substance: AMLODIPINE BESYLATE
     Indication: HYPERTENSION
     Dosage: 5 MILLIGRAM, QD
     Route: 048
  8. BEVACIZUMAB. [Concomitant]
     Active Substance: BEVACIZUMAB
     Indication: NON-SMALL CELL LUNG CANCER
     Dosage: 952.5 MG, Q3WK
     Route: 042
     Dates: start: 20180807
  9. TRAMCET [Concomitant]
     Active Substance: ACETAMINOPHEN\TRAMADOL
     Indication: PAIN
     Dosage: 1 DF, Q8H
     Route: 048
  10. LYRICA [Concomitant]
     Active Substance: PREGABALIN
     Indication: PAIN
     Dosage: 150 MG, Q12H
     Route: 048
  11. KINDAVATE [Concomitant]
     Active Substance: CLOBETASONE BUTYRATE
     Indication: PRODUCT USED FOR UNKNOWN INDICATION
     Dosage: 1 DOSAGE FORM, QD
     Route: 003
     Dates: start: 20180827

REACTIONS (1)
  - Ischaemic stroke [Recovering/Resolving]

NARRATIVE: CASE EVENT DATE: 20191122
